FAERS Safety Report 17909845 (Version 1)
Quarter: 2020Q2

REPORT INFORMATION
  Report Type: Other
  Country: FR (occurrence: FR)
  Receive Date: 20200617
  Receipt Date: 20200617
  Transmission Date: 20200714
  Serious: Yes (Other)
  Sender: FDA-Public Use
  Company Number: FR-GE HEALTHCARE LIFE SCIENCES-2020CSU002442

PATIENT

DRUGS (9)
  1. CATAPRESSAN [CLONIDINE HYDROCHLORIDE] [Concomitant]
     Active Substance: CLONIDINE HYDROCHLORIDE
     Indication: SPINAL ANAESTHESIA
     Dosage: UNK
     Route: 042
     Dates: start: 20171127, end: 20171127
  2. ACUPAN [Concomitant]
     Active Substance: NEFOPAM HYDROCHLORIDE
     Indication: PAIN
     Dosage: UNK
     Route: 042
     Dates: start: 20171127, end: 20171128
  3. PERFALGAN [Concomitant]
     Active Substance: ACETAMINOPHEN
     Indication: PAIN
     Dosage: UNK
     Route: 042
     Dates: start: 20171127, end: 20171128
  4. VISIPAQUE [Suspect]
     Active Substance: IODIXANOL
     Indication: UTERINE LEIOMYOMA
  5. VISIPAQUE [Suspect]
     Active Substance: IODIXANOL
     Indication: UTERINE LEIOMYOMA EMBOLISATION
     Dosage: UNK UNK, SINGLE
     Route: 013
     Dates: start: 20171127, end: 20171127
  6. MARCAINE [Suspect]
     Active Substance: BUPIVACAINE HYDROCHLORIDE
     Indication: SPINAL ANAESTHESIA
     Dosage: UNK
     Route: 042
     Dates: start: 20171127, end: 20171127
  7. MORPHINE [Suspect]
     Active Substance: MORPHINE
     Indication: PAIN
     Dosage: UNK
     Route: 042
     Dates: start: 20171127, end: 20171128
  8. PROFENID [Concomitant]
     Active Substance: KETOPROFEN
     Indication: PAIN
     Dosage: UNK
     Route: 042
     Dates: start: 20171127, end: 201712
  9. SUFENTANIL [Concomitant]
     Active Substance: SUFENTANIL
     Indication: SPINAL ANAESTHESIA
     Dosage: UNK
     Route: 042
     Dates: start: 20171127, end: 20171127

REACTIONS (2)
  - Off label use [Recovered/Resolved]
  - Dermatitis bullous [Recovered/Resolved]

NARRATIVE: CASE EVENT DATE: 20171127
